FAERS Safety Report 7333182-2 (Version None)
Quarter: 2011Q1

REPORT INFORMATION
  Report Type: 
  Country: None (occurrence: None)
  Receive Date: 20110223
  Receipt Date: 20110202
  Transmission Date: 20110831
  Serious: Yes (Hospitalization, Other)
  Sender: FDA-Public Use
  Company Number: JPI-P-010561

PATIENT
  Age: 61 Year
  Sex: Male

DRUGS (10)
  1. OMEPRAZOLE [Concomitant]
  2. ATORVASTATIN CALCIUM [Concomitant]
  3. RAMIPRIL [Concomitant]
  4. ATENOLOL [Concomitant]
  5. XYREM [Suspect]
     Indication: CATAPLEXY
     Dosage: (4.5 GM (2.25 GM, 2 IN 1 D), ORAL) (7.5 GM (3.75 GM, 2 IN 1 D), ORAL) (9 GM (4.5 GM, 2 IN 1 D), ORAL
     Route: 048
     Dates: start: 20100320
  6. XYREM [Suspect]
     Indication: CATAPLEXY
     Dosage: (4.5 GM (2.25 GM, 2 IN 1 D), ORAL) (7.5 GM (3.75 GM, 2 IN 1 D), ORAL) (9 GM (4.5 GM, 2 IN 1 D), ORAL
     Route: 048
     Dates: start: 20100314, end: 20100319
  7. XYREM [Suspect]
     Indication: CATAPLEXY
     Dosage: (4.5 GM (2.25 GM, 2 IN 1 D), ORAL) (7.5 GM (3.75 GM, 2 IN 1 D), ORAL) (9 GM (4.5 GM, 2 IN 1 D), ORAL
     Route: 048
     Dates: start: 20100101, end: 20100201
  8. XYREM [Suspect]
     Indication: CATAPLEXY
     Dosage: (4.5 GM (2.25 GM, 2 IN 1 D), ORAL) (7.5 GM (3.75 GM, 2 IN 1 D), ORAL) (9 GM (4.5 GM, 2 IN 1 D), ORAL
     Route: 048
     Dates: start: 20100201, end: 20100313
  9. AMLODIPINE BESILATE [Concomitant]
  10. MODAFINIL [Concomitant]

REACTIONS (13)
  - ARTHRALGIA [None]
  - ARTERITIS OBLITERANS [None]
  - RENAL NEOPLASM [None]
  - INSOMNIA [None]
  - MOVEMENT DISORDER [None]
  - SOMNAMBULISM [None]
  - ENURESIS [None]
  - AGGRESSION [None]
  - ABNORMAL SLEEP-RELATED EVENT [None]
  - NOCTURIA [None]
  - ABNORMAL DREAMS [None]
  - CRYING [None]
  - AMNESIA [None]
